FAERS Safety Report 6262852-2 (Version None)
Quarter: 2009Q3

REPORT INFORMATION
  Report Type: 
  Country: None (occurrence: None)
  Receive Date: 20090709
  Receipt Date: 20090623
  Transmission Date: 20100115
  Serious: Yes (Other)
  Sender: FDA-Public Use
  Company Number: DE-GENENTECH-277062

PATIENT
  Sex: Male

DRUGS (6)
  1. LUCENTIS [Suspect]
     Indication: MACULAR DEGENERATION
     Route: 031
  2. ACETYLSALICYLIC ACID SRT [Concomitant]
     Indication: DRUG USE FOR UNKNOWN INDICATION
  3. NIFEDIPINE [Concomitant]
     Indication: DRUG USE FOR UNKNOWN INDICATION
  4. RAMIPRIL W/ HYDROCHLOROTHIAZIDE [Concomitant]
     Indication: DRUG USE FOR UNKNOWN INDICATION
  5. METOPROLOL [Concomitant]
     Indication: DRUG USE FOR UNKNOWN INDICATION
     Dosage: 50 MG, UNK
  6. THYRONAJOD [Concomitant]
     Indication: DRUG USE FOR UNKNOWN INDICATION
     Dosage: 50 A?G, UNK

REACTIONS (1)
  - HYPOCALCAEMIA [None]
